FAERS Safety Report 5404612-8 (Version None)
Quarter: 2007Q3

REPORT INFORMATION
  Report Type: 
  Country: None (occurrence: None)
  Receive Date: 20070713
  Receipt Date: 20070423
  Transmission Date: 20080115
  Serious: Yes (Life-Threatening, Hospitalization)
  Sender: FDA-Public Use
  Company Number: US-JNJFOC-20060305424

PATIENT
  Age: 21 Year
  Sex: Female
  Weight: 64.8644 kg

DRUGS (4)
  1. ORTHO EVRA [Suspect]
     Indication: OVARIAN CYST
     Dates: start: 20031029, end: 20041223
  2. BACTRIM DS [Concomitant]
  3. ULTRAM [Concomitant]
  4. ALBUTEROL [Concomitant]

REACTIONS (4)
  - ASTHMA [None]
  - CHEST PAIN [None]
  - PULMONARY EMBOLISM [None]
  - WEIGHT DECREASED [None]
